FAERS Safety Report 9231651 (Version 1)
Quarter: 2013Q2

REPORT INFORMATION
  Report Type: Report from Study
  Country: US (occurrence: US)
  Receive Date: 20130415
  Receipt Date: 20130415
  Transmission Date: 20140414
  Serious: Yes (Death)
  Sender: FDA-Public Use
  Company Number: US-BAXTER-2013BAX014065

PATIENT
  Sex: 0

DRUGS (4)
  1. IFOSFAMIDE FOR INJECTION [Suspect]
     Indication: TRANSITIONAL CELL CARCINOMA
     Dosage: DAYS 1-4
  2. MESNA FOR INJECTION [Suspect]
     Indication: TRANSITIONAL CELL CARCINOMA
     Dosage: ON DAYS 1-4
  3. DOXORUBICIN [Suspect]
     Indication: TRANSITIONAL CELL CARCINOMA
     Dosage: ON DAY 3
  4. GEMCITABINE [Suspect]
     Indication: TRANSITIONAL CELL CARCINOMA
     Dosage: ON DAYS 2 AND 4

REACTIONS (3)
  - Pneumonia [Fatal]
  - Neutropenia [Fatal]
  - Refusal of treatment by patient [None]
